FAERS Safety Report 22633199 (Version 2)
Quarter: 2023Q4

REPORT INFORMATION
  Report Type: Spontaneous
  Country: BR (occurrence: BR)
  Receive Date: 20230623
  Receipt Date: 20231003
  Transmission Date: 20240109
  Serious: No
  Sender: FDA-Public Use
  Company Number: BR-BoehringerIngelheim-2023-BI-241707

PATIENT
  Age: 32 Year
  Sex: Female
  Weight: 110 kg

DRUGS (17)
  1. FENOTEROL HYDROBROMIDE\IPRATROPIUM BROMIDE [Suspect]
     Active Substance: FENOTEROL HYDROBROMIDE\IPRATROPIUM BROMIDE
     Indication: Asthma
     Dosage: AEROSOL, USED ABOUT 2 TO 3 TIMES DAILY
     Route: 048
     Dates: start: 2016, end: 202306
  2. FENOTEROL HYDROBROMIDE\IPRATROPIUM BROMIDE [Suspect]
     Active Substance: FENOTEROL HYDROBROMIDE\IPRATROPIUM BROMIDE
     Indication: Asthmatic crisis
     Dosage: 1 TIME A DAY, SOMETIMES NOT EVEN THAT. SHE COULD TAKE UP TO 2 DAYS BEFORE SHE NEEDED TO USE THE MEDI
  3. BEROTEC [Suspect]
     Active Substance: FENOTEROL HYDROBROMIDE
     Indication: Asthma
     Dosage: AEROSOL, USED ABOUT 3 OR 4 TIMES WEEKLY, ONLY AS A RESCUE MEDICATION?5 DROPS WITH SALINE SOLUTION FO
     Dates: start: 2012, end: 2015
  4. BEROTEC [Suspect]
     Active Substance: FENOTEROL HYDROBROMIDE
     Dosage: DROPS, 5 DROPS PER NEBULIZATION, SHE USED A MAXIMUM OF 2 NEBULIZATION A DAY.
     Route: 055
     Dates: start: 2017, end: 2017
  5. ATROVENT [Suspect]
     Active Substance: IPRATROPIUM BROMIDE
     Indication: Asthma
     Dosage: DROPS, 10 DROPS FOR EACH NEBULIZATION AND USED A MAXIMUM OF 2 NEBULIZATION DAILY.
     Route: 055
  6. ATROVENT [Suspect]
     Active Substance: IPRATROPIUM BROMIDE
     Dosage: USES 15-18 DROPS WAS NEBULIZED WITH A SALINE SOLUTION. ?DROPS SOLUTION
     Route: 048
  7. BECLOMETHASONE DIPROPIONATE [Suspect]
     Active Substance: BECLOMETHASONE DIPROPIONATE
     Indication: Asthma
     Dosage: AEROSOL, USED ABOUT 3 TIMES.
     Route: 055
     Dates: start: 2021
  8. BECLOMETHASONE DIPROPIONATE [Suspect]
     Active Substance: BECLOMETHASONE DIPROPIONATE
     Dosage: 1 TIME A DAY, ONE PUFF BEFORE BED, BUT THAT SHE COULD USE ANOTHER PUFF IF NECESSARY.
     Dates: end: 202307
  9. FLUTICASONE FUROATE\VILANTEROL TRIFENATATE [Suspect]
     Active Substance: FLUTICASONE FUROATE\VILANTEROL TRIFENATATE
     Indication: Asthma prophylaxis
     Dosage: ONCE DAILY AT NIGHT// AEROSOL POWDER, 1 PUFF A DAY.
     Route: 055
     Dates: start: 2017
  10. FLUTICASONE FUROATE\VILANTEROL TRIFENATATE [Suspect]
     Active Substance: FLUTICASONE FUROATE\VILANTEROL TRIFENATATE
     Indication: Asthma
  11. ALBUTEROL SULFATE [Suspect]
     Active Substance: ALBUTEROL SULFATE
     Indication: Product used for unknown indication
     Dosage: AEROSOL, USE 3 TO 4 PUFFS.
  12. ALBUTEROL [Concomitant]
     Active Substance: ALBUTEROL
     Indication: Asthma
     Dosage: AEROSOL
     Route: 055
  13. ALBUTEROL [Concomitant]
     Active Substance: ALBUTEROL
     Dosage: DROPS, NEBULIZATION, USED SPORADICALLY, ABOUT 2 TIMES DAILY WHEN NEEDED.
     Route: 055
     Dates: start: 2014, end: 201503
  14. SERETIDE [Concomitant]
     Active Substance: FLUTICASONE PROPIONATE\SALMETEROL XINAFOATE
     Indication: Asthma
     Dosage: IT WOULD BE AN INHALER WITH POWDER, SHE USED ONCE ONLY AT NIGHT.
     Route: 055
     Dates: start: 201205, end: 201708
  15. LORATADINE [Concomitant]
     Active Substance: LORATADINE
     Indication: Cough
     Dosage: SPORADIC USE
     Route: 048
  16. LORATADINE [Concomitant]
     Active Substance: LORATADINE
     Indication: Fatigue
  17. Alenia [Concomitant]
     Indication: Product used for unknown indication

REACTIONS (15)
  - Tachycardia [Recovered/Resolved]
  - COVID-19 [Recovered/Resolved]
  - COVID-19 [Recovered/Resolved]
  - Fatigue [Not Recovered/Not Resolved]
  - Adenomyosis [Recovered/Resolved]
  - COVID-19 [Recovered/Resolved]
  - Arthralgia [Recovered/Resolved]
  - Pain in extremity [Recovered/Resolved]
  - Pain in extremity [Recovered/Resolved]
  - Fear [Not Recovered/Not Resolved]
  - Drug ineffective [Unknown]
  - Anxiety [Unknown]
  - Drug ineffective [Unknown]
  - Gastrointestinal disorder [Unknown]
  - Respiratory disorder [Unknown]

NARRATIVE: CASE EVENT DATE: 20170101
